FAERS Safety Report 17767556 (Version 1)
Quarter: 2020Q2

REPORT INFORMATION
  Report Type: Report from Study
  Country: GB (occurrence: GB)
  Receive Date: 20200511
  Receipt Date: 20200511
  Transmission Date: 20200714
  Serious: Yes (Death)
  Sender: FDA-Public Use
  Company Number: GB-PFIZER INC-2020184732

PATIENT

DRUGS (2)
  1. GEMCITABINE HYDROCHLORIDE. [Suspect]
     Active Substance: GEMCITABINE HYDROCHLORIDE
     Indication: ADENOCARCINOMA PANCREAS
     Dosage: 1000 MG/M2, 6 CYCLES, 4 WEEKLY, INFUSION ON DAYS2,9 AND 16, STARTING 24 H AFTER NABP,OF 28 DAY CYCLE
     Route: 042
  2. NAB-PACLITAXEL [Suspect]
     Active Substance: PACLITAXEL
     Indication: ADENOCARCINOMA PANCREAS
     Dosage: 125 MG/M2, 6 CYCLES,4-WEEKLY, 30MIN OF INFUSION,DAYS1,8 AND 15 OF 28 DAY CYCLE
     Route: 042

REACTIONS (1)
  - Colitis [Fatal]
